FAERS Safety Report 19396063 (Version 8)
Quarter: 2022Q4

REPORT INFORMATION
  Report Type: Report from Study
  Country: DE (occurrence: DE)
  Receive Date: 20210609
  Receipt Date: 20221117
  Transmission Date: 20230113
  Serious: Yes (Other)
  Sender: FDA-Public Use
  Company Number: DE-BRISTOL-MYERS SQUIBB COMPANY-BMS-2021-047002

PATIENT
  Age: 53 Year
  Sex: Female

DRUGS (11)
  1. NIVOLUMAB [Suspect]
     Active Substance: NIVOLUMAB
     Indication: Squamous cell carcinoma of head and neck
     Dosage: 240 MILLIGRAM, Q2WK?DATE OF LAST DOSE OF NIVOLUMAB PRIOR TO ONSET OF ADVERSE EVENT: 27/MAY/2021
     Route: 042
     Dates: start: 20210305, end: 20210715
  2. BICTEGRAVIR\EMTRICITABINE\TENOFOVIR ALAFENAMIDE [Concomitant]
     Active Substance: BICTEGRAVIR\EMTRICITABINE\TENOFOVIR ALAFENAMIDE
     Indication: Product used for unknown indication
     Dosage: 50/200/25MG
     Route: 065
  3. METHADONE [Concomitant]
     Active Substance: METHADONE HYDROCHLORIDE
     Indication: Product used for unknown indication
     Dosage: 18 MILLILITER
     Route: 065
  4. ZOPICLONE [Concomitant]
     Active Substance: ZOPICLONE
     Indication: Product used for unknown indication
     Dosage: 7.5 MILLIGRAM
     Route: 065
     Dates: end: 20210801
  5. LORAZEPAM [Concomitant]
     Active Substance: LORAZEPAM
     Indication: Product used for unknown indication
     Dosage: 0.5 MILLIGRAM, PRN
     Route: 065
     Dates: end: 20210801
  6. PREGABALIN [Concomitant]
     Active Substance: PREGABALIN
     Indication: Neoplasm
     Dosage: 150 MILLIGRAM
     Route: 065
     Dates: end: 20210308
  7. METAMIZOLE MAGNESIUM [Concomitant]
     Active Substance: METAMIZOLE MAGNESIUM
     Indication: Neoplasm
     Dosage: 500 MILLIGRAM, QID
     Route: 065
     Dates: end: 20210308
  8. IBUPROFEN [Concomitant]
     Active Substance: IBUPROFEN
     Indication: Neoplasm
     Dosage: 600 MILLIGRAM, PRN
     Route: 065
     Dates: end: 20210527
  9. CEFTRIAXONE [Concomitant]
     Active Substance: CEFTRIAXONE
     Indication: Product used for unknown indication
     Dosage: 2 GRAM
     Route: 065
     Dates: start: 20210226, end: 20210307
  10. TINZAPARIN [Concomitant]
     Active Substance: TINZAPARIN
     Indication: Prophylaxis
     Dosage: 4500 INTERNATIONAL UNIT
     Route: 065
     Dates: start: 20210226, end: 20210310
  11. NUTRIFLEX [AMINO ACIDS NOS;CARBOHYDRATES NOS;ELECTROLYTES NOS] [Concomitant]
     Indication: Neoplasm
     Dosage: 1435 KCAL/DIE
     Route: 042
     Dates: start: 20210310, end: 20210823

REACTIONS (12)
  - Aspartate aminotransferase increased [Recovered/Resolved]
  - Gamma-glutamyltransferase increased [Recovered/Resolved with Sequelae]
  - Hypokalaemia [Recovered/Resolved]
  - Anaemia [Recovered/Resolved with Sequelae]
  - Hypomagnesaemia [Recovered/Resolved]
  - Lymphocyte count decreased [Recovered/Resolved]
  - Alanine aminotransferase increased [Recovered/Resolved]
  - Dry mouth [Recovered/Resolved]
  - Blood alkaline phosphatase increased [Recovered/Resolved]
  - Hypocalcaemia [Recovered/Resolved]
  - General physical health deterioration [Recovered/Resolved]
  - Tongue movement disturbance [Recovering/Resolving]

NARRATIVE: CASE EVENT DATE: 20210308
